FAERS Safety Report 5097743-6 (Version None)
Quarter: 2006Q3

REPORT INFORMATION
  Report Type: 
  Country: None (occurrence: None)
  Receive Date: 20060901
  Receipt Date: 20060819
  Transmission Date: 20061208
  Serious: Yes (Other)
  Sender: FDA-Public Use
  Company Number: 2006101386

PATIENT
  Age: 89 Year
  Sex: Female
  Weight: 59.8748 kg

DRUGS (3)
  1. NEURONTIN [Suspect]
     Indication: NEUROPATHY
     Dosage: 100 MG
     Dates: end: 20060817
  2. CHEMOTHERAPY NOS (CHEMOTHERAPY NOS) [Suspect]
     Indication: COLON CANCER
  3. PROTONIX [Concomitant]

REACTIONS (8)
  - CARDIAC FAILURE [None]
  - COLON CANCER [None]
  - DRUG INEFFECTIVE [None]
  - GAIT DISTURBANCE [None]
  - HYPERTENSION [None]
  - HYPOACUSIS [None]
  - PAIN [None]
  - RENAL IMPAIRMENT [None]
